FAERS Safety Report 14510334 (Version 1)
Quarter: 2018Q1

REPORT INFORMATION
  Report Type: Spontaneous
  Country: US (occurrence: US)
  Receive Date: 20180208
  Receipt Date: 20180208
  Transmission Date: 20180509
  Serious: No
  Sender: FDA-Public Use
  Company Number: None

PATIENT
  Age: 23 Year
  Sex: Female
  Weight: 64.86 kg

DRUGS (4)
  1. ESTRADIOL 2MG, 42806-089-01 2MG [Suspect]
     Active Substance: ESTRADIOL
     Indication: BLOOD OESTROGEN DECREASED
     Dosage: ?          QUANTITY:90 TABLET(S);?
     Route: 048
  2. PROGSTERONE [Concomitant]
  3. ESTRADIOL 2MG, 42806-089-01 2MG [Suspect]
     Active Substance: ESTRADIOL
     Indication: GENDER DYSPHORIA
     Dosage: ?          QUANTITY:90 TABLET(S);?
     Route: 048
  4. SPIRONOLACTONE. [Concomitant]
     Active Substance: SPIRONOLACTONE

REACTIONS (6)
  - Depression [None]
  - Night sweats [None]
  - Fatigue [None]
  - Hot flush [None]
  - Product substitution issue [None]
  - Headache [None]

NARRATIVE: CASE EVENT DATE: 19940208
